FAERS Safety Report 9271661 (Version 2)
Quarter: 2013Q3

REPORT INFORMATION
  Report Type: Report from Study
  Country: PL (occurrence: PL)
  Receive Date: 20130506
  Receipt Date: 20130712
  Transmission Date: 20140515
  Serious: Yes (Life-Threatening, Hospitalization, Other)
  Sender: FDA-Public Use
  Company Number: PL-JNJFOC-20130114752

PATIENT
  Age: 87 Year
  Sex: Male
  Weight: 72 kg

DRUGS (24)
  1. RIVAROXABAN [Suspect]
     Indication: CEREBROVASCULAR ACCIDENT PROPHYLAXIS
     Route: 048
     Dates: start: 20130104, end: 20130117
  2. RIVAROXABAN [Suspect]
     Indication: CEREBROVASCULAR ACCIDENT PROPHYLAXIS
     Route: 048
     Dates: start: 20130309
  3. RIVAROXABAN [Suspect]
     Indication: ATRIAL FIBRILLATION
     Route: 048
     Dates: start: 20130309
  4. RIVAROXABAN [Suspect]
     Indication: ATRIAL FIBRILLATION
     Route: 048
     Dates: start: 20130104, end: 20130117
  5. SACCHAROMYCES BOULARDII [Concomitant]
     Route: 065
     Dates: start: 20130116, end: 20130117
  6. FUROSEMID [Concomitant]
     Route: 065
     Dates: start: 20130104, end: 20130115
  7. FUROSEMID [Concomitant]
     Route: 065
     Dates: start: 20121228, end: 20130104
  8. FUROSEMID [Concomitant]
     Route: 065
     Dates: start: 20130117, end: 20130117
  9. FUROSEMID [Concomitant]
     Route: 065
     Dates: start: 20130118
  10. FUROSEMID [Concomitant]
     Route: 065
     Dates: start: 20130116, end: 20130117
  11. ENARENAL [Concomitant]
     Route: 065
  12. KALIPOZ [Concomitant]
     Route: 065
     Dates: start: 20130104, end: 20130116
  13. KALIPOZ [Concomitant]
     Route: 065
     Dates: start: 20130117
  14. KALIPOZ [Concomitant]
     Route: 065
     Dates: start: 20121228, end: 20130104
  15. SPIRONOL [Concomitant]
     Route: 065
     Dates: start: 20121221
  16. PLASMA, FRESH FROZEN [Concomitant]
     Route: 065
  17. OMNIC OCAS [Concomitant]
     Route: 065
     Dates: start: 20121229, end: 20130117
  18. TOLTERODINE L-TARTRATE [Concomitant]
     Route: 065
     Dates: start: 20121229, end: 20130117
  19. NOOTROPIL [Concomitant]
     Route: 065
     Dates: start: 20121229, end: 20130117
  20. HYDROXYZINUM [Concomitant]
     Route: 065
     Dates: start: 20130104, end: 20130117
  21. ZINNAT [Concomitant]
     Route: 065
     Dates: start: 20130116, end: 20130117
  22. BIOTRAKSON [Concomitant]
     Route: 065
     Dates: start: 20130117
  23. POTASSIUM CHLORIDE [Concomitant]
     Route: 065
     Dates: start: 20130118, end: 20130118
  24. GLUCOSE W/SODIUM CHLORIDE [Concomitant]
     Route: 065

REACTIONS (2)
  - Haemorrhage intracranial [Recovered/Resolved]
  - Transient ischaemic attack [Recovered/Resolved]
